FAERS Safety Report 4611691-4 (Version None)
Quarter: 2005Q2

REPORT INFORMATION
  Report Type: 
  Country: None (occurrence: None)
  Receive Date: 20050311
  Receipt Date: 20041206
  Transmission Date: 20051028
  Serious: No
  Sender: FDA-Public Use
  Company Number: 2004-BP-13318BP

PATIENT
  Age: 83 Year
  Sex: Female

DRUGS (12)
  1. SPIRIVA [Suspect]
     Indication: CHRONIC OBSTRUCTIVE PULMONARY DISEASE
     Dosage: 18 MCG (18 MCG), IH
     Route: 055
     Dates: start: 20041201
  2. ALBUTEROL [Concomitant]
  3. DIOVAN [Concomitant]
  4. COUMADIN [Concomitant]
  5. NEXIUM (ESOMAPRAZOLE) [Concomitant]
  6. PRAVACHOL [Concomitant]
  7. ZYRTEC-D (CIRRUS) [Concomitant]
  8. IRON (IRON) [Concomitant]
  9. FOLIC ACID [Concomitant]
  10. MULTIVITAMINS WITH IRON [Concomitant]
  11. HUMIBID LA (GUAIFENESIN) [Concomitant]
  12. OXYGEN (NIGHTIME) (OXYGEN) [Concomitant]

REACTIONS (1)
  - DRUG INEFFECTIVE [None]
